FAERS Safety Report 17184161 (Version 1)
Quarter: 2019Q4

REPORT INFORMATION
  Report Type: Spontaneous
  Country: US (occurrence: US)
  Receive Date: 20191220
  Receipt Date: 20191220
  Transmission Date: 20200122
  Serious: No
  Sender: FDA-Public Use
  Company Number: US-RECKITT BENCKISER HEALTHCARE INT LIMITED-RB-92360-2018

PATIENT
  Age: 70 Year
  Sex: Female

DRUGS (1)
  1. DELSYM [Suspect]
     Active Substance: DEXTROMETHORPHAN
     Dosage: 40 OR 60 ML, SINGLE (TOOK ABOUT TWO OR MORE DOSING CUP FULL OF THE PRODUCT).
     Route: 065
     Dates: start: 20181010

REACTIONS (2)
  - Overdose [Unknown]
  - Dizziness [Unknown]

NARRATIVE: CASE EVENT DATE: 20181010
